FAERS Safety Report 20434468 (Version 4)
Quarter: 2022Q1

REPORT INFORMATION
  Report Type: Report from Study
  Country: CL (occurrence: CL)
  Receive Date: 20220206
  Receipt Date: 20220314
  Transmission Date: 20220423
  Serious: Yes (Life-Threatening, Hospitalization, Other)
  Sender: FDA-Public Use
  Company Number: CL-NOVARTISPH-NVSC2022CL024508

PATIENT
  Sex: Female

DRUGS (1)
  1. PIQRAY [Suspect]
     Active Substance: ALPELISIB
     Indication: Breast cancer
     Dosage: 150 MG, QD
     Route: 048
     Dates: start: 202112

REACTIONS (15)
  - Cholangitis [Unknown]
  - Feeling abnormal [Unknown]
  - Infection [Unknown]
  - Feeding disorder [Unknown]
  - Weight decreased [Unknown]
  - Vomiting [Unknown]
  - Neoplasm [Unknown]
  - Crush injury [Unknown]
  - Asthenia [Unknown]
  - Malaise [Unknown]
  - Pyrexia [Unknown]
  - Periarthritis [Unknown]
  - Musculoskeletal discomfort [Unknown]
  - Drug ineffective [Unknown]
  - Pain [Unknown]
